FAERS Safety Report 5108682-6 (Version None)
Quarter: 2006Q3

REPORT INFORMATION
  Report Type: 
  Country: None (occurrence: None)
  Receive Date: 20060915
  Receipt Date: 20060906
  Transmission Date: 20061208
  Serious: Yes (Other)
  Sender: FDA-Public Use
  Company Number: 2006-BP-10396RO

PATIENT
  Age: 52 Year
  Sex: Male

DRUGS (7)
  1. PREDNISONE TAB [Suspect]
     Indication: IMMUNOSUPPRESSANT DRUG THERAPY
     Dosage: 0.5 MG (1 IN 1 D); 12 YEARS POST-TRANSPLANT
     Dates: start: 19930101
  2. CYCLOSPORINE [Suspect]
     Indication: IMMUNOSUPPRESSANT DRUG THERAPY
     Dosage: (4 MG/KG, 1 IN 12 HR)
     Dates: start: 19930101, end: 20011101
  3. TACROLIMUS (TACROLIMUS) [Suspect]
     Indication: IMMUNOSUPPRESSANT DRUG THERAPY
     Dosage: 1 MG (0.5 MG, 1 IN 12 HR)
     Dates: start: 20011101
  4. FLUVASTATIN (FLUVASTATIN) [Concomitant]
  5. ATORVASTATIN CALCIUM [Concomitant]
  6. TELMISARTAN (TELMISARTAN) [Concomitant]
  7. ACENOCOUMAROL (ACENOCOUMAROL) [Concomitant]

REACTIONS (9)
  - ATRIAL FIBRILLATION [None]
  - CHOLECYSTITIS [None]
  - CHRONIC ALLOGRAFT NEPHROPATHY [None]
  - CORONARY ARTERY STENOSIS [None]
  - GINGIVAL HYPERPLASIA [None]
  - HYPERCHOLESTEROLAEMIA [None]
  - INTRACARDIAC THROMBUS [None]
  - MYOCARDIAL INFARCTION [None]
  - VENTRICULAR FIBRILLATION [None]
